FAERS Safety Report 8386380-3 (Version None)
Quarter: 2012Q2

REPORT INFORMATION
  Report Type: 
  Country: None (occurrence: None)
  Receive Date: 20120525
  Receipt Date: 20120522
  Transmission Date: 20120825
  Serious: Yes (Other)
  Sender: FDA-Public Use
  Company Number: AU-NAPPMUNDI-USA-2012-0087387

PATIENT
  Age: 43 Year
  Sex: Male

DRUGS (3)
  1. METHAMPHETAMINE HYDROCHLORIDE [Suspect]
     Indication: PRODUCT USED FOR UNKNOWN INDICATION
  2. MARIJUANA [Suspect]
     Indication: PRODUCT USED FOR UNKNOWN INDICATION
  3. MORPHINE SULFATE [Suspect]
     Indication: PRODUCT USED FOR UNKNOWN INDICATION

REACTIONS (5)
  - AGGRESSION [None]
  - ANGER [None]
  - PARANOIA [None]
  - SUBSTANCE ABUSE [None]
  - ABNORMAL BEHAVIOUR [None]
